FAERS Safety Report 13873226 (Version 1)
Quarter: 2017Q3

REPORT INFORMATION
  Report Type: Spontaneous
  Country: FR (occurrence: FR)
  Receive Date: 20170816
  Receipt Date: 20170816
  Transmission Date: 20171127
  Serious: Yes (Death, Hospitalization)
  Sender: FDA-Public Use
  Company Number: FR-ASTRAZENECA-2017SE82072

PATIENT
  Age: 29388 Day
  Sex: Male

DRUGS (8)
  1. LANTUS [Suspect]
     Active Substance: INSULIN GLARGINE
     Route: 058
     Dates: start: 20170727
  2. ORBENINE [Suspect]
     Active Substance: CLOXACILLIN SODIUM
     Route: 042
     Dates: start: 20170719, end: 20170722
  3. PARACETAMOL [Suspect]
     Active Substance: ACETAMINOPHEN
     Route: 048
     Dates: start: 20170720
  4. PREVISCAN [Suspect]
     Active Substance: FLUINDIONE
     Route: 048
     Dates: start: 20170719, end: 20170726
  5. NEFOPAM [Suspect]
     Active Substance: NEFOPAM
     Route: 042
     Dates: start: 20170720
  6. INEXIUM [Suspect]
     Active Substance: ESOMEPRAZOLE
     Route: 048
     Dates: start: 201609, end: 20170727
  7. BISOPROLOL [Suspect]
     Active Substance: BISOPROLOL
     Route: 048
     Dates: start: 20170720
  8. VITAMIN K [Suspect]
     Active Substance: PHYTONADIONE
     Route: 042
     Dates: start: 20170721, end: 20170722

REACTIONS (2)
  - Glomerulonephritis [Fatal]
  - Acute kidney injury [Fatal]

NARRATIVE: CASE EVENT DATE: 20170722
